FAERS Safety Report 18772243 (Version 1)
Quarter: 2021Q1

REPORT INFORMATION
  Report Type: Report from Study
  Country: US (occurrence: US)
  Receive Date: 20210121
  Receipt Date: 20210121
  Transmission Date: 20210419
  Serious: Yes (Other)
  Sender: FDA-Public Use
  Company Number: US-JAZZ-2021-US-000668

PATIENT
  Sex: Female

DRUGS (11)
  1. ESTRADIOL. [Concomitant]
     Active Substance: ESTRADIOL
  2. XYREM [Suspect]
     Active Substance: SODIUM OXYBATE
     Dosage: DOSE ADJUSTMENT
     Route: 048
     Dates: start: 200608, end: 201406
  3. AZELASTINE. [Suspect]
     Active Substance: AZELASTINE HYDROCHLORIDE
     Indication: PRODUCT USED FOR UNKNOWN INDICATION
  4. FLUTICASONE. [Suspect]
     Active Substance: FLUTICASONE
     Indication: PRODUCT USED FOR UNKNOWN INDICATION
  5. XOLAIR [Concomitant]
     Active Substance: OMALIZUMAB
  6. XYREM [Suspect]
     Active Substance: SODIUM OXYBATE
     Dosage: 2.75 GRAM, SECOND DOSE
     Route: 048
     Dates: start: 201406
  7. DOXYCYCLINE. [Suspect]
     Active Substance: DOXYCYCLINE
     Indication: PRODUCT USED FOR UNKNOWN INDICATION
  8. ALBUTEROL [SALBUTAMOL] [Concomitant]
     Active Substance: ALBUTEROL
  9. XYREM [Suspect]
     Active Substance: SODIUM OXYBATE
     Indication: SLEEP ATTACKS
     Dosage: 2.25 GRAM, BID
     Route: 048
     Dates: start: 200607, end: 200608
  10. XYREM [Suspect]
     Active Substance: SODIUM OXYBATE
     Dosage: 3.25 GRAM, FIRST DOSE
     Route: 048
     Dates: start: 201406
  11. LYRICA [Concomitant]
     Active Substance: PREGABALIN

REACTIONS (9)
  - Oral herpes [Unknown]
  - Cough [Unknown]
  - Atrial fibrillation [Unknown]
  - Blood creatinine increased [Not Recovered/Not Resolved]
  - Hypersensitivity [Unknown]
  - Bone density abnormal [Unknown]
  - Bile acid malabsorption [Unknown]
  - Abdominal pain [Not Recovered/Not Resolved]
  - Pre-existing condition improved [Unknown]
